FAERS Safety Report 12951805 (Version 1)
Quarter: 2016Q4

REPORT INFORMATION
  Report Type: Spontaneous
  Country: US (occurrence: US)
  Receive Date: 20161117
  Receipt Date: 20161117
  Transmission Date: 20170207
  Serious: No
  Sender: FDA-Public Use
  Company Number: US-SHIRE-US201616628

PATIENT
  Age: 67 Year
  Sex: Female
  Weight: 80.73 kg

DRUGS (2)
  1. XIIDRA [Suspect]
     Active Substance: LIFITEGRAST
     Indication: DRY EYE
     Dosage: 1 GTT, 2X/DAY:BID(BOTH EYES)
     Route: 047
     Dates: start: 20160831
  2. PATADAY [Concomitant]
     Active Substance: OLOPATADINE HYDROCHLORIDE
     Indication: PRODUCT USED FOR UNKNOWN INDICATION
     Dosage: UNK, 1X/DAY:QD
     Route: 047

REACTIONS (3)
  - Instillation site reaction [Not Recovered/Not Resolved]
  - Instillation site pain [Not Recovered/Not Resolved]
  - Instillation site discharge [Not Recovered/Not Resolved]

NARRATIVE: CASE EVENT DATE: 20160831
